FAERS Safety Report 9838241 (Version 2)
Quarter: 2014Q3

REPORT INFORMATION
  Report Type: Spontaneous
  Country: US (occurrence: US)
  Receive Date: 20140123
  Receipt Date: 20140730
  Transmission Date: 20150326
  Serious: Yes (Hospitalization, Other)
  Sender: FDA-Public Use
  Company Number: US-009507513-1401USA009969

PATIENT
  Sex: Female

DRUGS (1)
  1. NUVARING [Suspect]
     Active Substance: ETHINYL ESTRADIOL\ETONOGESTREL
     Dosage: UNK
     Route: 067
     Dates: start: 201110, end: 20120615

REACTIONS (8)
  - Ovarian cyst [Unknown]
  - Back pain [Unknown]
  - Female sterilisation [Unknown]
  - Keratomileusis [Unknown]
  - Foot operation [Unknown]
  - Uterine dilation and curettage [Unknown]
  - Pulmonary embolism [Unknown]
  - Hypothyroidism [Unknown]

NARRATIVE: CASE EVENT DATE: 20120612
